FAERS Safety Report 24638726 (Version 1)
Quarter: 2024Q4

REPORT INFORMATION
  Report Type: Spontaneous
  Country: US (occurrence: US)
  Receive Date: 20241119
  Receipt Date: 20241119
  Transmission Date: 20250114
  Serious: Yes (Other)
  Sender: MERCK
  Company Number: US-009507513-2411USA005253

PATIENT
  Sex: Female

DRUGS (3)
  1. KEYTRUDA [Suspect]
     Active Substance: PEMBROLIZUMAB
     Indication: Uterine cancer
     Dosage: 400 MILLIGRAM, EVERY 6 WEEKS
  2. CARBOPLATIN [Suspect]
     Active Substance: CARBOPLATIN
     Indication: Uterine cancer
  3. PACLITAXEL [Suspect]
     Active Substance: PACLITAXEL
     Indication: Uterine cancer

REACTIONS (2)
  - Renal impairment [Unknown]
  - Anaemia [Unknown]
